FAERS Safety Report 16856361 (Version 1)
Quarter: 2019Q3

REPORT INFORMATION
  Report Type: Spontaneous
  Country: US (occurrence: US)
  Receive Date: 20190926
  Receipt Date: 20190926
  Transmission Date: 20191005
  Serious: No
  Sender: FDA-Public Use
  Company Number: US-PFIZER INC-2019404106

PATIENT
  Age: 33 Year
  Sex: Female
  Weight: 102.4 kg

DRUGS (1)
  1. LYRICA [Suspect]
     Active Substance: PREGABALIN
     Indication: NEUROPATHY PERIPHERAL
     Dosage: 75 MG, 2X/DAY(180 CAPSULE, DAYS SUPPLY: 90)
     Route: 048

REACTIONS (2)
  - Intentional product misuse [Unknown]
  - Withdrawal syndrome [Unknown]
